FAERS Safety Report 4660174-4 (Version None)
Quarter: 2005Q2

REPORT INFORMATION
  Report Type: 
  Country: None (occurrence: None)
  Receive Date: 20050419
  Receipt Date: 20040505
  Transmission Date: 20051028
  Serious: Yes (Life-Threatening, Hospitalization)
  Sender: FDA-Public Use
  Company Number: 20040500299

PATIENT
  Age: 62 Year
  Sex: Male
  Weight: 87.9978 kg

DRUGS (4)
  1. HEPARIN [Suspect]
     Indication: CAROTID ENDARTERECTOMY
     Dates: start: 20031204, end: 20031204
  2. PLAVIX [Suspect]
     Indication: CAROTID ENDARTERECTOMY
     Dosage: 75 MG ONCE PO
     Route: 048
     Dates: start: 20031204, end: 20031204
  3. GEMFIBBROZIL [Concomitant]
  4. PROPRANOLOL [Concomitant]

REACTIONS (1)
  - POST PROCEDURAL HAEMATOMA [None]
